FAERS Safety Report 4428271-6 (Version None)
Quarter: 2004Q3

REPORT INFORMATION
  Report Type: 
  Country: None (occurrence: None)
  Receive Date: 20040813
  Receipt Date: 20040811
  Transmission Date: 20050211
  Serious: Yes (Hospitalization)
  Sender: FDA-Public Use
  Company Number: 200411244GDS

PATIENT
  Age: 71 Year
  Sex: Male

DRUGS (1)
  1. BUFFERIN [Suspect]
     Dosage: ORAL
     Route: 048

REACTIONS (2)
  - ANAEMIA [None]
  - PERIRENAL HAEMATOMA [None]
